FAERS Safety Report 6954675-3 (Version None)
Quarter: 2010Q3

REPORT INFORMATION
  Report Type: 
  Country: None (occurrence: None)
  Receive Date: 20100829
  Receipt Date: 20100727
  Transmission Date: 20110219
  Serious: No
  Sender: FDA-Public Use
  Company Number: US-ABBOTT-10P-163-0659884-00

PATIENT
  Sex: Male
  Weight: 99.88 kg

DRUGS (9)
  1. NIASPAN [Suspect]
     Indication: LOW DENSITY LIPOPROTEIN INCREASED
     Dosage: AT BEDTIME; FIRST WEEK (1 TABLET)
  2. NIASPAN [Suspect]
     Indication: HIGH DENSITY LIPOPROTEIN DECREASED
     Dosage: AT BEDTIME; 2ND WEEK (2 TABLETS)
  3. NIASPAN [Suspect]
     Dosage: AT BEDTIME; 3RD WEEK (3 TABLETS)
  4. NIASPAN [Suspect]
     Dosage: AT BEDTIME; 4TH WEEK(4 TABLETS)
  5. NIASPAN [Suspect]
     Dosage: 2 TABLETS AT BEDTIME (DECREASED)
  6. ASPIRIN [Concomitant]
     Indication: PRODUCT USED FOR UNKNOWN INDICATION
     Dosage: AT BEDTIME
  7. LISINOPRIL [Concomitant]
     Indication: PRODUCT USED FOR UNKNOWN INDICATION
  8. RED YEAST RICE [Concomitant]
     Indication: PRODUCT USED FOR UNKNOWN INDICATION
     Dosage: COUPLE A DAY
  9. FISH OIL [Concomitant]
     Indication: PRODUCT USED FOR UNKNOWN INDICATION

REACTIONS (3)
  - DIZZINESS POSTURAL [None]
  - EPISTAXIS [None]
  - PRESYNCOPE [None]
